FAERS Safety Report 20539434 (Version 1)
Quarter: 2022Q1

REPORT INFORMATION
  Report Type: Report from Study
  Country: CA (occurrence: CA)
  Receive Date: 20220302
  Receipt Date: 20220302
  Transmission Date: 20220423
  Serious: Yes (Hospitalization, Other)
  Sender: FDA-Public Use
  Company Number: CA-JNJFOC-20210237666

PATIENT
  Age: 34 Year
  Sex: Female
  Weight: 65 kg

DRUGS (3)
  1. STELARA [Suspect]
     Active Substance: USTEKINUMAB
     Indication: Crohn^s disease
     Route: 058
     Dates: start: 20150429
  2. STELARA [Suspect]
     Active Substance: USTEKINUMAB
     Dosage: DOCTOR ORDERED INJECTIONS TO BE MAINTAINED AT EVERY 4 WEEKS
     Route: 058
  3. COVID-19 VACCINE [Concomitant]
     Indication: COVID-19 prophylaxis
     Dosage: SECOND DOSE PLANNED FOR 17-NOV-2021
     Route: 065

REACTIONS (5)
  - Exposure during pregnancy [Recovered/Resolved]
  - Thrombosis [Unknown]
  - Postoperative wound infection [Unknown]
  - Abdominal pain [Unknown]
  - Caesarean section [Unknown]

NARRATIVE: CASE EVENT DATE: 20210101
